FAERS Safety Report 20543012 (Version 1)
Quarter: 2022Q1

REPORT INFORMATION
  Report Type: Spontaneous
  Country: BE (occurrence: BE)
  Receive Date: 20220302
  Receipt Date: 20220302
  Transmission Date: 20220423
  Serious: Yes (Hospitalization, Other)
  Sender: FDA-Public Use
  Company Number: BE-Accord-254196

PATIENT
  Age: 63 Year
  Sex: Male
  Weight: 79 kg

DRUGS (41)
  1. CARBOPLATIN [Suspect]
     Active Substance: CARBOPLATIN
     Dosage: REGIMEN 1, 1Q3W, 375 MG
     Route: 065
     Dates: start: 20210804, end: 20210804
  2. CARBOPLATIN [Suspect]
     Active Substance: CARBOPLATIN
     Dosage: REGIMEN 1, 1Q3W, 500 MG
     Route: 042
     Dates: start: 20210914, end: 20210914
  3. CARBOPLATIN [Suspect]
     Active Substance: CARBOPLATIN
     Dosage: REGIMEN 1, 1Q3W, 452.45 MG
     Route: 042
     Dates: start: 20211014, end: 20211014
  4. CYTARABINE [Suspect]
     Active Substance: CYTARABINE
     Dosage: REGIMEN 1, 1Q3W, 2000 MG/M2
     Route: 042
     Dates: start: 20210804, end: 20211015
  5. RITUXIMAB [Suspect]
     Active Substance: RITUXIMAB
     Dosage: REGIMEN 1, 1Q3W, 375 MG/M2
     Route: 042
     Dates: start: 20210804, end: 20211014
  6. EPCORITAMAB [Suspect]
     Active Substance: EPCORITAMAB
     Dosage: REGIMEN 1, PRIMING DOSE, 0.16 MG, SINGLE, DUOBODY-CD3XCD20, DOSE DELAYED
     Route: 058
     Dates: start: 20210804, end: 20210804
  7. EPCORITAMAB [Suspect]
     Active Substance: EPCORITAMAB
     Dosage: REGIMEN 1, INTERMEDIATE DOSE, 0.8 MG, SINGLE, DUOBODY-CD3XCD20, DOSE DELAYED
     Route: 058
     Dates: start: 20210811, end: 20210811
  8. EPCORITAMAB [Suspect]
     Active Substance: EPCORITAMAB
     Dosage: REGIMEN 1, FULL DOSE, 48 MG, SINGLE, WEEKLY, DUOBODY-CD3XCD20, DOSE DELAYED
     Route: 058
     Dates: start: 20210819, end: 20211104
  9. DEXAMETHASONE SODIUM PHOSPHATE [Suspect]
     Active Substance: DEXAMETHASONE SODIUM PHOSPHATE
     Dosage: 40 MG, CYCLIC (FOR 4 DAYS, 21 DAY CYCLE)
     Route: 042
     Dates: start: 20210804, end: 20211017
  10. MONOFREE DEXAMETHASON [DEXAMETHASONE SODIUM PHOSPHATE] [Concomitant]
     Dosage: UNK
     Dates: start: 20210804
  11. FILGRASTIM [Concomitant]
     Active Substance: FILGRASTIM
     Dosage: UNK
     Dates: start: 20211018
  12. ACYCLOVIR [Concomitant]
     Active Substance: ACYCLOVIR
     Dosage: UNK
     Dates: start: 20210721
  13. XALATAN [Concomitant]
     Active Substance: LATANOPROST
     Dosage: UNK
     Dates: start: 20210718
  14. ACETAMINOPHEN [Concomitant]
     Active Substance: ACETAMINOPHEN
     Dosage: UNK
     Dates: start: 20211024, end: 20211025
  15. HYALURONATE SODIUM\TREHALOSE [Concomitant]
     Active Substance: HYALURONATE SODIUM\TREHALOSE
     Dosage: UNK
     Dates: start: 20210804
  16. BACTRIM [Concomitant]
     Active Substance: SULFAMETHOXAZOLE\TRIMETHOPRIM
     Dosage: UNK
     Dates: start: 20210718
  17. LISINOPRIL [Concomitant]
     Active Substance: LISINOPRIL
     Dosage: UNK
     Dates: start: 20210917
  18. TRADONAL ODIS [Concomitant]
     Dosage: UNK
     Dates: start: 20210718
  19. MEDROL [Concomitant]
     Active Substance: METHYLPREDNISOLONE
     Dosage: UNK
     Dates: start: 20211018, end: 20211021
  20. LASIX [Concomitant]
     Active Substance: FUROSEMIDE
     Dosage: UNK
     Dates: start: 20211016, end: 20211029
  21. CHOLECALCIFEROL [Concomitant]
     Active Substance: CHOLECALCIFEROL
     Dosage: UNK
     Dates: start: 20210718
  22. ZYRTEC [Concomitant]
     Active Substance: CETIRIZINE HYDROCHLORIDE
     Dosage: 10 MG, SINGLE
     Route: 048
     Dates: start: 20211104, end: 20211104
  23. CIPROFLOXACIN [Concomitant]
     Active Substance: CIPROFLOXACIN
     Dosage: UNK
     Dates: start: 20211026, end: 20211101
  24. PIPERACILLIN SODIUM\TAZOBACTAM SODIUM [Concomitant]
     Active Substance: PIPERACILLIN SODIUM\TAZOBACTAM SODIUM
     Dosage: UNK
     Dates: start: 20211025, end: 20211028
  25. ENOXAPARIN SODIUM [Concomitant]
     Active Substance: ENOXAPARIN SODIUM
     Dosage: UNK
     Dates: start: 20210930
  26. ONDANSETRON [Concomitant]
     Active Substance: ONDANSETRON
     Dosage: UNK
     Dates: start: 20210804
  27. BUMETANIDE [Concomitant]
     Active Substance: BUMETANIDE
     Dosage: UNK
     Dates: start: 20211002
  28. MOVICOL [Concomitant]
     Active Substance: POLYETHYLENE GLYCOL 3350\POTASSIUM CHLORIDE\SODIUM BICARBONATE\SODIUM CHLORIDE
     Dosage: UNK
     Dates: start: 20210810
  29. FEBUXOSTAT [Concomitant]
     Active Substance: FEBUXOSTAT
     Dosage: UNK
     Dates: start: 20201004
  30. ALLOPURINOL [Concomitant]
     Active Substance: ALLOPURINOL
     Dosage: UNK
     Dates: start: 20211017
  31. OMEPRAZOLE [Concomitant]
     Active Substance: OMEPRAZOLE
     Dosage: UNK
     Dates: start: 20210719
  32. ASPIRIN [Concomitant]
     Active Substance: ASPIRIN
     Dosage: UNK
     Dates: start: 20210827
  33. ARANESP [Concomitant]
     Active Substance: DARBEPOETIN ALFA
     Dosage: UNK
     Dates: start: 20211013
  34. FOLIC ACID [Concomitant]
     Active Substance: FOLIC ACID
     Dosage: UNK
     Dates: start: 20211015
  35. LITICAN [ALIZAPRIDE] [Concomitant]
     Dosage: UNK
     Dates: start: 20211028, end: 20211028
  36. ESOMEPRAZOLE [Concomitant]
     Active Substance: ESOMEPRAZOLE
     Dosage: UNK
     Dates: start: 20210718
  37. BISOPROLOL [Concomitant]
     Active Substance: BISOPROLOL
     Dosage: UNK
     Dates: start: 20210827
  38. LIPITOR [Concomitant]
     Active Substance: ATORVASTATIN CALCIUM
     Dosage: UNK
     Dates: start: 20210909
  39. MAGNESIUM [Concomitant]
     Active Substance: MAGNESIUM
     Dosage: UNK
     Dates: start: 20211002, end: 20211018
  40. FLUCONAZOLE [Concomitant]
     Active Substance: FLUCONAZOLE
     Dosage: UNK
     Dates: start: 20210804
  41. AUGMENTIN [Concomitant]
     Active Substance: AMOXICILLIN\CLAVULANATE POTASSIUM
     Dosage: UNK
     Dates: start: 20211021, end: 20211024

REACTIONS (1)
  - Acute kidney injury [Recovered/Resolved]

NARRATIVE: CASE EVENT DATE: 20211112
